FAERS Safety Report 11247529 (Version 1)
Quarter: 2015Q3

REPORT INFORMATION
  Report Type: Spontaneous
  Country: HR (occurrence: None)
  Receive Date: 20150706
  Receipt Date: 20150706
  Transmission Date: 20151125
  Serious: Yes (Other)
  Sender: FDA-Public Use
  Company Number: 2015JUB00202

PATIENT
  Age: 67 Year
  Sex: Female

DRUGS (2)
  1. RISPERIDONE (RISPERIDONE) UNKNOWN [Suspect]
     Active Substance: RISPERIDONE
  2. OXAZEPAM. [Concomitant]
     Active Substance: OXAZEPAM

REACTIONS (2)
  - Pleurothotonus [None]
  - Bedridden [None]

NARRATIVE: CASE EVENT DATE: 201301
